FAERS Safety Report 10239441 (Version 1)
Quarter: 2014Q1

REPORT INFORMATION
  Report Type: Spontaneous
  Country: US (occurrence: None)
  Receive Date: 20140306
  Receipt Date: 20140306
  Transmission Date: 20141002
  Serious: Yes (Other)
  Sender: FDA-Public Use
  Company Number: 163-21880-13032253

PATIENT
  Sex: Female
  Weight: 77.11 kg

DRUGS (14)
  1. REVLIMID (LENALIDOMIDE) (10 MILLIGRAM, CAPSULES) [Suspect]
     Indication: MANTLE CELL LYMPHOMA
     Route: 048
     Dates: start: 20130218, end: 20130306
  2. GABAPENTIN (GABAPENTIN) (UNKNOWN) (GABAPENTIN) [Concomitant]
  3. CALCIUM + D (CALCIUM + VIT D) (UNKNOWN) [Concomitant]
  4. ACYCLOVIR (ACICLOVIR) (CAPSULES) [Concomitant]
  5. ANASTROZOLE (ANASTROZOLE) (UNKNOWN) [Concomitant]
  6. LOVASTATIN (LOVASTATIN) (TABLETS) [Concomitant]
  7. ASA (ACETYLSALICYLIC ACID) (TABLETS) [Concomitant]
  8. OMEPRAZOLE (OMEPRAZOLE) (UNKNOWN) [Concomitant]
  9. VITAMIN D (ERGOCALCIFEROL) (UNKNOWN) [Concomitant]
  10. LISINOPRIL (LISINOPRIL) (UNKNOWN) [Concomitant]
  11. LIDODERM (LIDOCAINE) (UNKNOWN) [Concomitant]
  12. LEVOTHYROXIN (LEVOTHYROXINE SODIUM) (UNKNOWN) [Concomitant]
  13. INDAPAMIDE (BI PREDONIUM) (UNKNOWN) [Concomitant]
  14. TONIC WATER (QUININE) (LIQUID) [Concomitant]

REACTIONS (5)
  - Muscle spasms [None]
  - Fatigue [None]
  - Asthenia [None]
  - Muscle spasms [None]
  - Hyponatraemia [None]
